FAERS Safety Report 6038784-1 (Version None)
Quarter: 2009Q1

REPORT INFORMATION
  Report Type: 
  Country: None (occurrence: None)
  Receive Date: 20090115
  Receipt Date: 20080605
  Transmission Date: 20090719
  Serious: No
  Sender: FDA-Public Use
  Company Number: US-ABBOTT-08P-163-0455238-00

PATIENT
  Sex: Male
  Weight: 88.53 kg

DRUGS (1)
  1. ADVICOR [Suspect]
     Indication: HIGH DENSITY LIPOPROTEIN DECREASED
     Dosage: 500/20MG (TOTAL DAILY DOSE) 500/20 MG (UNIT DOSE)
     Route: 048
     Dates: start: 20080101

REACTIONS (1)
  - FLUSHING [None]
